FAERS Safety Report 4293988-3 (Version None)
Quarter: 2004Q1

REPORT INFORMATION
  Report Type: 
  Country: None (occurrence: None)
  Receive Date: 20040211
  Receipt Date: 20040122
  Transmission Date: 20041129
  Serious: Yes (Death)
  Sender: FDA-Public Use
  Company Number: JP_040102541

PATIENT
  Age: 70 Year
  Sex: Female

DRUGS (5)
  1. PERMAX [Suspect]
     Indication: PARKINSON'S DISEASE
     Dosage: 2250 MCG/DAY
     Dates: start: 20030601
  2. ZYPREXA [Suspect]
     Indication: PARKINSON'S DISEASE
     Dosage: 15 MG/DAY
     Dates: start: 20030601
  3. MENESIT [Concomitant]
  4. HICEE (ASCORBIC ACID) [Concomitant]
  5. MAGNESIUM OXIDE [Concomitant]

REACTIONS (1)
  - CARDIAC FAILURE ACUTE [None]
